FAERS Safety Report 17011175 (Version 1)
Quarter: 2019Q4

REPORT INFORMATION
  Report Type: Spontaneous
  Country: US (occurrence: US)
  Receive Date: 20191108
  Receipt Date: 20191108
  Transmission Date: 20200122
  Serious: No
  Sender: FDA-Public Use
  Company Number: US-NOVOPROD-630083

PATIENT
  Age: 71 Year
  Sex: Male

DRUGS (3)
  1. TRESIBA [Suspect]
     Active Substance: INSULIN DEGLUDEC
     Indication: TYPE 2 DIABETES MELLITUS
     Dosage: 36 U, QD
     Route: 058
     Dates: start: 201712, end: 2018
  2. TRESIBA [Suspect]
     Active Substance: INSULIN DEGLUDEC
     Dosage: 26 U, UNK
     Route: 058
     Dates: start: 2018
  3. VICTOZA [Concomitant]
     Active Substance: LIRAGLUTIDE
     Indication: TYPE 2 DIABETES MELLITUS
     Dosage: 1.8 MG, UNK
     Route: 058
     Dates: start: 2014

REACTIONS (3)
  - Blood glucose decreased [Not Recovered/Not Resolved]
  - Muscular weakness [Not Recovered/Not Resolved]
  - Abdominal discomfort [Not Recovered/Not Resolved]

NARRATIVE: CASE EVENT DATE: 201808
